FAERS Safety Report 7503864-8 (Version None)
Quarter: 2011Q2

REPORT INFORMATION
  Report Type: 
  Country: None (occurrence: None)
  Receive Date: 20110518
  Receipt Date: 20110503
  Transmission Date: 20111010
  Serious: Yes (Other)
  Sender: FDA-Public Use
  Company Number: 2011002220

PATIENT
  Age: 49 Year
  Sex: Female

DRUGS (1)
  1. TARCEVA [Suspect]
     Indication: LUNG NEOPLASM MALIGNANT
     Dosage: (150 MG,QD), ORAL
     Route: 048

REACTIONS (5)
  - SKIN LESION [None]
  - PERICARDIAL EFFUSION [None]
  - DIARRHOEA [None]
  - CARDIOMEGALY [None]
  - X-RAY ABNORMAL [None]
